FAERS Safety Report 20529982 (Version 1)
Quarter: 2022Q1

REPORT INFORMATION
  Report Type: Report from Study
  Country: GB (occurrence: GB)
  Receive Date: 20220301
  Receipt Date: 20220301
  Transmission Date: 20220423
  Serious: Yes (Other)
  Sender: FDA-Public Use
  Company Number: GB-NOVARTISPH-NVSC2022GB043128

PATIENT
  Sex: Male

DRUGS (1)
  1. HYRIMOZ [Suspect]
     Active Substance: ADALIMUMAB-ADAZ
     Indication: Ankylosing spondylitis
     Dosage: 40.00 MG, EOW (40MG/0.8ML)
     Route: 058
     Dates: start: 20220207

REACTIONS (3)
  - Colitis ulcerative [Unknown]
  - Symptom recurrence [Unknown]
  - Headache [Recovered/Resolved]
